FAERS Safety Report 7284535-2 (Version None)
Quarter: 2011Q1

REPORT INFORMATION
  Report Type: 
  Country: None (occurrence: None)
  Receive Date: 20110209
  Receipt Date: 20110204
  Transmission Date: 20110831
  Serious: Yes (Death, Other)
  Sender: FDA-Public Use
  Company Number: FR-BRISTOL-MYERS SQUIBB COMPANY-15490428

PATIENT
  Age: 80 Year
  Sex: Female
  Weight: 86 kg

DRUGS (18)
  1. ABILIFY [Suspect]
     Indication: BIPOLAR DISORDER
     Route: 048
  2. CERIS [Concomitant]
     Dosage: 1DF:1TABS CERIS 20MG
  3. ABILIFY [Suspect]
     Indication: DEPRESSION
     Route: 048
  4. DEPAKOTE [Concomitant]
     Dosage: 1 DF=1TAB DEPAKOTE 500MG
  5. ATENOLOL [Concomitant]
     Indication: HYPERTENSION
     Dosage: 1DF: HALF TABLET ATENOLOL 50MG
  6. FENOFIBRATE [Concomitant]
     Dosage: 1DF:1CAP FENOFIBRATE 160MG
  7. ACETAMINOPHEN [Concomitant]
     Dosage: 1DF:1TAB DOLIPRANE 1000MG
  8. SODIUM BICARBONATE [Concomitant]
  9. DIALGIREX [Concomitant]
     Dosage: 1DF:500MG DIALGIREX 500MG
  10. SALAZOPYRINE [Concomitant]
     Dosage: 1DF:2TABS SALAZOPYRINE 500MG
  11. UVEDOSE [Concomitant]
     Dosage: 1DF:1 AMPOULE UVEDOSE 100 IU/2ML
  12. RIVOTRIL [Concomitant]
     Indication: BIPOLAR DISORDER
     Dosage: 12 DROPS IN EVENING
  13. PROKINYL [Concomitant]
     Dosage: 1DF:2TABS PROKINYL SR 15MG
  14. ATHYMIL [Concomitant]
     Dosage: 60 MG IN THE EVENING ATHYMIL 30MG(2TABS)
  15. ACETAMINOPHEN W/ PROPOXYPHENE HCL [Concomitant]
  16. ASPIRIN [Concomitant]
     Indication: CEREBROVASCULAR ACCIDENT
     Dosage: 1DF: 1SACHET KARDEGIC 160MG
  17. NEXIUM [Concomitant]
     Dosage: 1DF:40MG INEXIUM 40MG
  18. MAGNE-B6 [Concomitant]
     Dosage: 1DF:2 TABS

REACTIONS (2)
  - SUDDEN DEATH [None]
  - VOMITING [None]
